FAERS Safety Report 17786000 (Version 2)
Quarter: 2020Q3

REPORT INFORMATION
  Report Type: Spontaneous
  Country: US (occurrence: US)
  Receive Date: 20200513
  Receipt Date: 20200922
  Transmission Date: 20201102
  Serious: No
  Sender: FDA-Public Use
  Company Number: US-BLUEPRINT MEDICINES CORPORATION-SP-US-2020-000522

PATIENT
  Sex: Male

DRUGS (2)
  1. AYVAKIT [Suspect]
     Active Substance: AVAPRITINIB
     Route: 048
  2. AYVAKIT [Suspect]
     Active Substance: AVAPRITINIB
     Indication: GASTROINTESTINAL STROMAL TUMOUR
     Route: 048
     Dates: start: 20200405

REACTIONS (8)
  - Ammonia decreased [Unknown]
  - Periorbital swelling [Unknown]
  - Haemoglobin decreased [Unknown]
  - Rash [Unknown]
  - Thyroid function test abnormal [Unknown]
  - White blood cell disorder [Unknown]
  - Lacrimation increased [Unknown]
  - Eye swelling [Unknown]
